FAERS Safety Report 7378044-X (Version None)
Quarter: 2011Q1

REPORT INFORMATION
  Report Type: 
  Country: None (occurrence: None)
  Receive Date: 20110317
  Receipt Date: 20110228
  Transmission Date: 20110831
  Serious: Yes (Hospitalization)
  Sender: FDA-Public Use
  Company Number: JPI-P-013988

PATIENT
  Age: 43 Year
  Sex: Female

DRUGS (20)
  1. SYNTHROID [Concomitant]
  2. VITAMIN D [Concomitant]
  3. ADDERALL 10 [Concomitant]
  4. SIMVASTATIN [Concomitant]
  5. TRAZODONE HCL [Concomitant]
  6. ONDANSETRON [Concomitant]
  7. ROPINIROLE HYDROCHLORIDE [Concomitant]
  8. HYOSCYAMINE [Concomitant]
  9. ZONISAMIDE [Concomitant]
  10. CLONAZEPAM [Concomitant]
  11. OXYCODONE AND ACETAMINOPHEN [Concomitant]
  12. DESVENLAFAXINE [Concomitant]
  13. CALCIUM [Concomitant]
  14. LORAZEPAM [Concomitant]
  15. XYREM [Suspect]
     Indication: CATAPLEXY
     Dosage: SEE IMAGE
     Route: 048
     Dates: start: 20100913, end: 20100901
  16. XYREM [Suspect]
     Indication: CATAPLEXY
     Dosage: SEE IMAGE
     Route: 048
     Dates: start: 20101206
  17. XYREM [Suspect]
     Indication: CATAPLEXY
     Dosage: SEE IMAGE
     Route: 048
     Dates: start: 20100101, end: 20101205
  18. XYREM [Suspect]
     Indication: CATAPLEXY
     Dosage: SEE IMAGE
     Route: 048
     Dates: start: 20100901, end: 20100101
  19. HYDROXYZINE [Concomitant]
  20. ASPIRIN [Concomitant]

REACTIONS (10)
  - DEPRESSION [None]
  - CONDITION AGGRAVATED [None]
  - DIZZINESS [None]
  - NAUSEA [None]
  - DRUG ABUSE [None]
  - DEHYDRATION [None]
  - NASAL SEPTUM ULCERATION [None]
  - SUBCUTANEOUS ABSCESS [None]
  - HALLUCINATION [None]
  - CLOSTRIDIAL INFECTION [None]
